FAERS Safety Report 9290755 (Version 1)
Quarter: 2013Q2

REPORT INFORMATION
  Report Type: Spontaneous
  Country: US (occurrence: US)
  Receive Date: 20130515
  Receipt Date: 20130515
  Transmission Date: 20140414
  Serious: No
  Sender: FDA-Public Use
  Company Number: US-PFIZER INC-2013146856

PATIENT
  Age: 59 Year
  Sex: Male
  Weight: 71.66 kg

DRUGS (6)
  1. AMLODIPINE BESILATE [Suspect]
     Indication: HYPERTENSION
     Dosage: 2.5 MG, 2X/DAY
     Dates: start: 20130415
  2. FUROSEMIDE [Concomitant]
     Indication: HYPERTENSION
     Dosage: HALF OF 20 MG TABLET ,1X/DAY
  3. ZOCOR [Concomitant]
     Indication: BLOOD CHOLESTEROL INCREASED
     Dosage: 10 MG, 1X/DAY
  4. BENICAR [Concomitant]
     Indication: HYPERTENSION
     Dosage: HALF OF 20 MG TABLET , 1X/DAY
  5. COZAAR [Concomitant]
     Indication: HYPERTENSION
  6. MICARDIS [Concomitant]
     Indication: HYPERTENSION

REACTIONS (1)
  - Drug ineffective [Unknown]
